FAERS Safety Report 6728060-3 (Version None)
Quarter: 2010Q2

REPORT INFORMATION
  Report Type: 
  Country: None (occurrence: None)
  Receive Date: 20100517
  Receipt Date: 20100505
  Transmission Date: 20101027
  Serious: Yes (Hospitalization)
  Sender: FDA-Public Use
  Company Number: US-GENZYME-CLOF-1000945

PATIENT
  Sex: Male

DRUGS (10)
  1. CLOLAR [Suspect]
     Indication: ACUTE PROMYELOCYTIC LEUKAEMIA
     Dosage: UNK UNK, UNK
     Route: 065
  2. MELPHALAN HYDROCHLORIDE [Suspect]
     Indication: ACUTE PROMYELOCYTIC LEUKAEMIA
     Dosage: UNK UNK, UNK
     Route: 065
  3. THIOTEPA [Suspect]
     Indication: ACUTE PROMYELOCYTIC LEUKAEMIA
     Dosage: UNK UNK, UNK
     Route: 065
  4. TACROLIMUS [Concomitant]
     Indication: PROPHYLAXIS
  5. METHOTREXATE [Concomitant]
     Indication: PROPHYLAXIS
  6. VANCOMYCIN [Concomitant]
     Indication: DRUG USE FOR UNKNOWN INDICATION
  7. PIPERACILLIN W [Concomitant]
     Indication: DRUG USE FOR UNKNOWN INDICATION
  8. MICAFUNGIN [Concomitant]
     Indication: DRUG USE FOR UNKNOWN INDICATION
  9. ACYCLOVIR [Concomitant]
     Indication: DRUG USE FOR UNKNOWN INDICATION
  10. MYCOPHENOLATE MOFETIL [Concomitant]
     Indication: PROPHYLAXIS

REACTIONS (3)
  - ENCEPHALOPATHY [None]
  - HEPATIC FUNCTION ABNORMAL [None]
  - RENAL FAILURE [None]
